FAERS Safety Report 24603477 (Version 1)
Quarter: 2024Q4

REPORT INFORMATION
  Report Type: Spontaneous
  Country: PT (occurrence: PT)
  Receive Date: 20241111
  Receipt Date: 20241111
  Transmission Date: 20250115
  Serious: Yes (Death)
  Sender: MYLAN
  Company Number: PT-MYLANLABS-2024M1100298

PATIENT
  Age: 49 Year
  Sex: Female

DRUGS (15)
  1. PACLITAXEL [Suspect]
     Active Substance: PACLITAXEL
     Indication: Thyroid cancer
     Dosage: 80 MILLIGRAM/SQ. METER, QW
     Route: 065
  2. PACLITAXEL [Suspect]
     Active Substance: PACLITAXEL
     Indication: Angiosarcoma
  3. PACLITAXEL [Suspect]
     Active Substance: PACLITAXEL
     Indication: Metastases to lung
  4. DOXORUBICIN [Suspect]
     Active Substance: DOXORUBICIN
     Indication: Thyroid cancer
     Dosage: 40 MILLIGRAM/SQ. METER, Q28D, RECEIVED 3 CYCLES
     Route: 065
  5. DOXORUBICIN [Suspect]
     Active Substance: DOXORUBICIN
     Indication: Angiosarcoma
  6. DOXORUBICIN [Suspect]
     Active Substance: DOXORUBICIN
     Indication: Metastases to lung
  7. GEMCITABINE [Suspect]
     Active Substance: GEMCITABINE
     Indication: Thyroid cancer
     Dosage: 1000 MILLIGRAM/SQ. METER, QW, RECEIVED 6 CYCLES
     Route: 065
  8. GEMCITABINE [Suspect]
     Active Substance: GEMCITABINE
     Indication: Angiosarcoma
  9. GEMCITABINE [Suspect]
     Active Substance: GEMCITABINE
     Indication: Metastases to lung
  10. DOCETAXEL [Suspect]
     Active Substance: DOCETAXEL
     Indication: Thyroid cancer
     Dosage: 50 MILLIGRAM/SQ. METER, QW,RECEIVED 5 CYCLES
     Route: 065
  11. DOCETAXEL [Suspect]
     Active Substance: DOCETAXEL
     Indication: Angiosarcoma
  12. DOCETAXEL [Suspect]
     Active Substance: DOCETAXEL
     Indication: Metastases to lung
  13. PAZOPANIB [Suspect]
     Active Substance: PAZOPANIB
     Indication: Thyroid cancer
     Dosage: UNK
     Route: 065
  14. PAZOPANIB [Suspect]
     Active Substance: PAZOPANIB
     Indication: Angiosarcoma
  15. PAZOPANIB [Suspect]
     Active Substance: PAZOPANIB
     Indication: Metastases to lung

REACTIONS (1)
  - Drug ineffective [Fatal]
